FAERS Safety Report 16143350 (Version 2)
Quarter: 2019Q2

REPORT INFORMATION
  Report Type: Report from Study
  Country: DE (occurrence: DE)
  Receive Date: 20190401
  Receipt Date: 20190406
  Transmission Date: 20190711
  Serious: Yes (Hospitalization)
  Sender: FDA-Public Use
  Company Number: DE-B.I. PHARMACEUTICALS,INC./RIDGEFIELD-2016-BI-62724DE

PATIENT
  Age: 66 Year
  Sex: Female
  Weight: 66 kg

DRUGS (2)
  1. DOCETAXEL. [Suspect]
     Active Substance: DOCETAXEL
     Indication: LUNG ADENOCARCINOMA
     Dosage: DAILY DOSE: 75MG/M^2 BODY SURFACE AREA, FORMULATION: LIQUID
     Route: 042
     Dates: start: 20160725, end: 20170313
  2. VARGATEF [Suspect]
     Active Substance: NINTEDANIB
     Indication: LUNG ADENOCARCINOMA
     Route: 048
     Dates: start: 20160726, end: 20170330

REACTIONS (6)
  - Diarrhoea [Recovered/Resolved]
  - Dry skin [Recovered/Resolved]
  - Leukocytosis [Recovered/Resolved]
  - Diarrhoea [Recovered/Resolved]
  - Onychomadesis [Recovered/Resolved]
  - Fatigue [Recovered/Resolved]

NARRATIVE: CASE EVENT DATE: 20160818
